FAERS Safety Report 16277103 (Version 2)
Quarter: 2019Q2

REPORT INFORMATION
  Report Type: Spontaneous
  Country: US (occurrence: US)
  Receive Date: 20190506
  Receipt Date: 20190625
  Transmission Date: 20190711
  Serious: No
  Sender: FDA-Public Use
  Company Number: US-PFIZER INC-2019183740

PATIENT
  Age: 61 Year
  Sex: Female

DRUGS (1)
  1. XELJANZ [Suspect]
     Active Substance: TOFACITINIB CITRATE
     Indication: RHEUMATOID ARTHRITIS
     Dosage: 5 MG, DAILY

REACTIONS (6)
  - Constipation [Recovering/Resolving]
  - Dry mouth [Recovering/Resolving]
  - Gastrointestinal disorder [Unknown]
  - Abdominal pain upper [Recovering/Resolving]
  - Headache [Unknown]
  - Gastrooesophageal reflux disease [Recovering/Resolving]
